FAERS Safety Report 8122678-1 (Version None)
Quarter: 2012Q1

REPORT INFORMATION
  Report Type: 
  Country: None (occurrence: None)
  Receive Date: 20120208
  Receipt Date: 20120130
  Transmission Date: 20120608
  Serious: Yes (Hospitalization)
  Sender: FDA-Public Use
  Company Number: US-BIOGENIDEC-2012BI002215

PATIENT
  Age: 54 Year
  Sex: Female

DRUGS (11)
  1. LASIX [Concomitant]
     Indication: PROPHYLAXIS
  2. DEPAKOTE [Concomitant]
     Indication: CONVULSION
  3. CYMBALTA [Concomitant]
     Indication: DEPRESSION
  4. PLAVIX [Concomitant]
     Indication: ANTICOAGULANT THERAPY
  5. BACLOFEN [Concomitant]
     Indication: MULTIPLE SCLEROSIS
  6. NITROSTAT [Concomitant]
     Indication: CHEST PAIN
  7. DILAUDID [Concomitant]
     Indication: PAIN
     Dates: start: 20120120
  8. AVONEX [Suspect]
     Indication: MULTIPLE SCLEROSIS
     Route: 030
     Dates: start: 19960101
  9. METHADONE [Concomitant]
     Indication: PAIN
     Dates: start: 20111101
  10. AVONEX [Suspect]
     Route: 030
  11. DILANTIN [Concomitant]
     Indication: CONVULSION

REACTIONS (12)
  - MULTIPLE SCLEROSIS RELAPSE [None]
  - CHRONIC OBSTRUCTIVE PULMONARY DISEASE [None]
  - GASTROINTESTINAL TUBE INSERTION [None]
  - RIB FRACTURE [None]
  - CONTUSION [None]
  - BLADDER CATHETERISATION [None]
  - PARAESTHESIA [None]
  - URINARY TRACT INFECTION [None]
  - APHAGIA [None]
  - INFLUENZA LIKE ILLNESS [None]
  - WEIGHT DECREASED [None]
  - DIABETES MELLITUS [None]
